FAERS Safety Report 10329988 (Version 3)
Quarter: 2014Q3

REPORT INFORMATION
  Report Type: Spontaneous
  Country: JP (occurrence: JP)
  Receive Date: 20140721
  Receipt Date: 20140908
  Transmission Date: 20150326
  Serious: Yes (Hospitalization)
  Sender: FDA-Public Use
  Company Number: JP-GLAXOSMITHKLINE-B1015056A

PATIENT
  Age: 82 Year
  Sex: Female
  Weight: 34 kg

DRUGS (2)
  1. CALONAL [Concomitant]
     Active Substance: ACETAMINOPHEN
     Indication: PAIN
     Route: 065
  2. VALTREX [Suspect]
     Active Substance: VALACYCLOVIR HYDROCHLORIDE
     Indication: HERPES ZOSTER
     Dosage: .25G PER DAY
     Route: 048
     Dates: start: 20140703, end: 20140707

REACTIONS (4)
  - Screaming [Unknown]
  - Decreased appetite [Unknown]
  - Toxic encephalopathy [Recovering/Resolving]
  - Psychiatric symptom [Unknown]

NARRATIVE: CASE EVENT DATE: 20140707
